FAERS Safety Report 6422054-3 (Version None)
Quarter: 2009Q4

REPORT INFORMATION
  Report Type: 
  Country: None (occurrence: None)
  Receive Date: 20091030
  Receipt Date: 20091028
  Transmission Date: 20100525
  Serious: Yes (Hospitalization)
  Sender: FDA-Public Use
  Company Number: FR-BRISTOL-MYERS SQUIBB COMPANY-13431895

PATIENT
  Age: 55 Year
  Sex: Female

DRUGS (9)
  1. ABATACEPT [Suspect]
     Indication: RHEUMATOID ARTHRITIS
     Route: 042
     Dates: start: 20020604, end: 20060510
  2. METHOTREXATE [Suspect]
     Dates: start: 19981207
  3. PREDNISONE [Concomitant]
     Dates: start: 19950101
  4. DIFFU-K [Concomitant]
     Dates: start: 19950101
  5. ACTONEL [Concomitant]
     Dates: start: 20041020
  6. SPECIAFOLDINE [Concomitant]
     Dates: start: 20010221
  7. VOLTAREN [Concomitant]
     Dates: start: 19980101
  8. CARTROL [Concomitant]
     Dates: start: 20050314
  9. ACETAMINOPHEN AND CODEINE PHOSPHATE [Concomitant]
     Dates: start: 20010220

REACTIONS (1)
  - ARTHRITIS INFECTIVE [None]
